FAERS Safety Report 20992637 (Version 1)
Quarter: 2022Q2

REPORT INFORMATION
  Report Type: Spontaneous
  Country: CA (occurrence: CA)
  Receive Date: 20220622
  Receipt Date: 20220622
  Transmission Date: 20220721
  Serious: Yes (Other)
  Sender: FDA-Public Use
  Company Number: CA-PFIZER INC-202200851210

PATIENT
  Age: 49 Year
  Sex: Female

DRUGS (2)
  1. METHOTREXATE SODIUM [Suspect]
     Active Substance: METHOTREXATE SODIUM
     Indication: Rheumatoid arthritis
     Dosage: 25 MG, WEEKLY, DISCONTINUED
     Route: 065
     Dates: start: 20201204, end: 20210827
  2. SULFASALAZINE [Suspect]
     Active Substance: SULFASALAZINE
     Indication: Rheumatoid arthritis
     Dosage: 1000MG, 2X/DAY, DISCONTINUED
     Route: 065
     Dates: start: 20210303, end: 20210707

REACTIONS (2)
  - Gastrointestinal disorder [Unknown]
  - Synovitis [Unknown]

NARRATIVE: CASE EVENT DATE: 20220608
